FAERS Safety Report 5490256-9 (Version None)
Quarter: 2007Q4

REPORT INFORMATION
  Report Type: 
  Country: None (occurrence: None)
  Receive Date: 20071018
  Receipt Date: 20071009
  Transmission Date: 20080405
  Serious: Yes (Hospitalization, Other)
  Sender: FDA-Public Use
  Company Number: US-ABBOTT-07P-163-0420219-00

PATIENT
  Sex: Female
  Weight: 73.548 kg

DRUGS (15)
  1. HUMIRA [Suspect]
     Indication: RHEUMATOID ARTHRITIS
     Route: 058
     Dates: start: 20040101, end: 20060601
  2. HUMIRA [Suspect]
     Route: 058
     Dates: start: 20060801, end: 20061001
  3. HUMIRA [Suspect]
     Dosage: PEN
     Route: 058
     Dates: start: 20061201, end: 20070813
  4. HUMIRA [Suspect]
     Indication: RHEUMATOID ARTHRITIS
     Dates: start: 20061201, end: 20070813
  5. PREDNISONE [Concomitant]
     Indication: RHEUMATOID ARTHRITIS
  6. DIFLUNISAL [Concomitant]
     Indication: RHEUMATOID ARTHRITIS
  7. METHOTREXATE [Concomitant]
     Indication: RHEUMATOID ARTHRITIS
  8. LEFLUNOMIDE [Concomitant]
     Indication: RHEUMATOID ARTHRITIS
  9. ESOMEPRAZOLE MAGNESIUM [Concomitant]
     Indication: GASTROOESOPHAGEAL REFLUX DISEASE
  10. ATENOLOL [Concomitant]
     Indication: HYPERTENSION
  11. BLOOD PRESSURE MEDICATION [Concomitant]
     Indication: HYPERTENSION
  12. CYCLOBENZAPRINE HCL [Concomitant]
     Indication: DRUG USE FOR UNKNOWN INDICATION
  13. CALCIUM [Concomitant]
     Indication: DRUG USE FOR UNKNOWN INDICATION
  14. M.V.I. [Concomitant]
     Indication: DRUG USE FOR UNKNOWN INDICATION
  15. BLOOD PRESSURE MEDICATION [Concomitant]

REACTIONS (3)
  - ARTHRALGIA [None]
  - BACK PAIN [None]
  - SPINAL COLUMN STENOSIS [None]
